FAERS Safety Report 7461531-3 (Version None)
Quarter: 2011Q2

REPORT INFORMATION
  Report Type: 
  Country: None (occurrence: None)
  Receive Date: 20110428
  Receipt Date: 20110415
  Transmission Date: 20111010
  Serious: Yes (Hospitalization, Other)
  Sender: FDA-Public Use
  Company Number: JHP201100061

PATIENT
  Age: 34 Year
  Sex: Female

DRUGS (2)
  1. PITOCIN [Suspect]
     Indication: UTERINE ATONY
     Dosage: 40 UNITS
  2. METHYLERGONOVINE MALEATE [Suspect]
     Indication: UTERINE ATONY
     Dosage: SINGLE DOSE

REACTIONS (7)
  - HAEMATOCRIT INCREASED [None]
  - BLOOD CREATININE INCREASED [None]
  - SUBARACHNOID HAEMORRHAGE [None]
  - REFUSAL OF TREATMENT BY PATIENT [None]
  - OEDEMA PERIPHERAL [None]
  - VASCULITIS CEREBRAL [None]
  - POSTPARTUM DISORDER [None]
